FAERS Safety Report 15178232 (Version 3)
Quarter: 2018Q3

REPORT INFORMATION
  Report Type: Spontaneous
  Country: DE (occurrence: DE)
  Receive Date: 20180721
  Receipt Date: 20180906
  Transmission Date: 20181010
  Serious: Yes (Hospitalization)
  Sender: FDA-Public Use
  Company Number: DE-AUROBINDO-AUR-APL-2018-036597

PATIENT
  Age: 23 Year
  Sex: Male

DRUGS (4)
  1. QUETIAPINE FILM?COATED TABLET [Interacting]
     Active Substance: QUETIAPINE
     Dosage: 9?DAY TREATMENT WITH 50 MG PER DAY (MAXIMUM DAILY DOSE, 50 MG; CUMULATIVE DOSE, 500 MG ()
     Route: 048
  2. QUETIAPINE FILM?COATED TABLET [Suspect]
     Active Substance: QUETIAPINE
     Indication: AGITATION
     Dosage: 25 MILLIGRAM
     Route: 065
  3. METHYLPHENIDATE. [Suspect]
     Active Substance: METHYLPHENIDATE
     Indication: PRODUCT USED FOR UNKNOWN INDICATION
     Dosage: CASE3#: 40 MG SLOW RELEASE METHYLPHENIDATE PER DAY (STEADY DOSE SINCE SEVERAL YEARS)
     Route: 065
  4. QUETIAPINE FILM?COATED TABLET [Interacting]
     Active Substance: QUETIAPINE
     Dosage: 50 MILLIGRAM, ONCE A DAY
     Route: 048

REACTIONS (4)
  - Blood creatine phosphokinase increased [Recovered/Resolved]
  - Aspartate aminotransferase increased [Recovered/Resolved]
  - Drug interaction [Recovered/Resolved]
  - Alanine aminotransferase increased [Recovered/Resolved]
